FAERS Safety Report 5208524-4 (Version None)
Quarter: 2007Q1

REPORT INFORMATION
  Report Type: 
  Country: None (occurrence: None)
  Receive Date: 20070115
  Receipt Date: 20070111
  Transmission Date: 20070707
  Serious: Yes (Hospitalization)
  Sender: FDA-Public Use
  Company Number: GB-ROXANE LABORATORIES, INC-2007-UK-00129UK

PATIENT
  Sex: Male
  Weight: 84.4 kg

DRUGS (2)
  1. BIBW 2992 [Suspect]
     Indication: PROSTATE CANCER
  2. LOPERAMIDE HCL [Suspect]
     Route: 048
     Dates: start: 20070107

REACTIONS (1)
  - DIARRHOEA [None]
